FAERS Safety Report 20191423 (Version 3)
Quarter: 2024Q2

REPORT INFORMATION
  Report Type: Report from Study
  Country: DE (occurrence: DE)
  Receive Date: 20211216
  Receipt Date: 20240402
  Transmission Date: 20240716
  Serious: Yes (Other)
  Sender: FDA-Public Use
  Company Number: DE-BRISTOL-MYERS SQUIBB COMPANY-BMS-2021-059292

PATIENT
  Age: 49 Year
  Sex: Female

DRUGS (7)
  1. LEVETIRACETAM [Suspect]
     Active Substance: LEVETIRACETAM
     Indication: Chorea-acanthocytosis
     Dosage: 4000 MILLIGRAM, ONCE A DAY (2X 2000 MILLIGRAM)
     Route: 065
  2. ZONISAMIDE [Suspect]
     Active Substance: ZONISAMIDE
     Indication: Chorea-acanthocytosis
     Dosage: 200 MILLIGRAM, ONCE A DAY (2 X 100 MILLIGRAM)
     Route: 065
  3. CLOBAZAM [Suspect]
     Active Substance: CLOBAZAM
     Indication: Chorea-acanthocytosis
     Dosage: 10 MILLIGRAM, ONCE A DAY(2 X 5 MILLIGRAM )
     Route: 065
  4. DASATINIB [Suspect]
     Active Substance: DASATINIB
     Indication: Chronic myeloid leukaemia
     Dosage: 100 MILLIGRAM, ONCE A DAY
     Route: 048
  5. DASATINIB [Suspect]
     Active Substance: DASATINIB
     Indication: Chorea-acanthocytosis
     Dosage: 100 MILLIGRAM, DAILY (25.8 WEEKS)
     Route: 048
  6. VALPROATE [Suspect]
     Active Substance: VALPROIC ACID
     Indication: Chorea-acanthocytosis
     Dosage: 2000 MILLIGRAM, ONCE A DAY (2 X 1000 MILLIGRAM )
     Route: 065
  7. VITAMIN D [Suspect]
     Active Substance: VITAMIN D NOS
     Indication: Product used for unknown indication
     Dosage: UNK
     Route: 065

REACTIONS (7)
  - Frequent bowel movements [Unknown]
  - Thrombocytopenia [Recovered/Resolved]
  - Haematocrit decreased [Recovered/Resolved]
  - Off label use [Recovering/Resolving]
  - Acne [Unknown]
  - Alopecia [Unknown]
  - Red blood cell count decreased [Recovered/Resolved]
